FAERS Safety Report 24141183 (Version 1)
Quarter: 2024Q3

REPORT INFORMATION
  Report Type: Spontaneous
  Country: US (occurrence: None)
  Receive Date: 20240725
  Receipt Date: 20240725
  Transmission Date: 20241017
  Serious: Yes (Hospitalization)
  Sender: Public
  Company Number: None

PATIENT
  Sex: Male

DRUGS (1)
  1. NYVEPRIA [Suspect]
     Active Substance: PEGFILGRASTIM-APGF
     Indication: Follicle centre lymphoma diffuse small cell lymphoma
     Dosage: FREQUENCY : AS DIRECTED;?
     Route: 058
     Dates: start: 202406

REACTIONS (3)
  - Back pain [None]
  - Dysstasia [None]
  - Metastases to lymph nodes [None]
